FAERS Safety Report 7993190 (Version 7)
Quarter: 2014Q3

REPORT INFORMATION
  Report Type: Spontaneous
  Country: US (occurrence: US)
  Receive Date: 20110616
  Receipt Date: 20140729
  Transmission Date: 20150326
  Serious: Yes (Hospitalization, Disabling, Other)
  Sender: FDA-Public Use
  Company Number: US-RANBAXY-2011RR-45337

PATIENT
  Age: 49 Year
  Sex: Female

DRUGS (17)
  1. LEVAQUIN [Suspect]
     Active Substance: LEVOFLOXACIN
     Indication: URINARY TRACT INFECTION
     Dosage: 500 MG, UNK
     Route: 042
     Dates: start: 20090314
  2. LEVAQUIN [Suspect]
     Active Substance: LEVOFLOXACIN
     Indication: PSORIASIS
  3. IBUPROFEN. [Suspect]
     Active Substance: IBUPROFEN
     Indication: PRODUCT USED FOR UNKNOWN INDICATION
     Dosage: 200 MG, UNK
     Route: 048
     Dates: start: 20090404, end: 20090504
  4. LEVAQUIN [Suspect]
     Active Substance: LEVOFLOXACIN
     Indication: DIARRHOEA
  5. LEVAQUIN [Suspect]
     Active Substance: LEVOFLOXACIN
     Indication: PSORIASIS
  6. LEVAQUIN [Suspect]
     Active Substance: LEVOFLOXACIN
     Indication: BACTERIAL INFECTION
     Dosage: 750 MG, UNK
     Route: 042
     Dates: start: 20090316
  7. AMOXICILLIN. [Suspect]
     Active Substance: AMOXICILLIN
     Indication: PSORIASIS
     Dosage: 500 MG, UNK
     Route: 065
     Dates: start: 20090306
  8. LEVAQUIN [Suspect]
     Active Substance: LEVOFLOXACIN
     Indication: STAPHYLOCOCCAL INFECTION
     Dosage: 750 MG, UNK
     Route: 042
     Dates: start: 20090316
  9. LEVAQUIN [Suspect]
     Active Substance: LEVOFLOXACIN
     Indication: NAUSEA
  10. VANCOMYCIN [Suspect]
     Active Substance: VANCOMYCIN
     Indication: STAPHYLOCOCCAL INFECTION
     Dosage: UNK
     Route: 042
  11. LEVAQUIN [Suspect]
     Active Substance: LEVOFLOXACIN
     Dosage: 750 MG, UNK
     Route: 042
     Dates: start: 20090326
  12. LEVAQUIN [Suspect]
     Active Substance: LEVOFLOXACIN
     Indication: GASTROENTERITIS
  13. LEVAQUIN [Suspect]
     Active Substance: LEVOFLOXACIN
     Indication: GASTROENTERITIS
     Dosage: 750 MG, UNK
     Route: 042
     Dates: start: 20090326
  14. LEVAQUIN [Suspect]
     Active Substance: LEVOFLOXACIN
     Indication: VOMITING
  15. PANTOPRAZOLE [Suspect]
     Active Substance: PANTOPRAZOLE SODIUM
     Indication: PRODUCT USED FOR UNKNOWN INDICATION
     Dosage: UNK
     Route: 065
  16. LEVAQUIN [Suspect]
     Active Substance: LEVOFLOXACIN
     Indication: URINARY TRACT INFECTION
     Dosage: 250 MG, UNK
     Route: 048
     Dates: start: 20090401, end: 20090408
  17. LEVAQUIN [Suspect]
     Active Substance: LEVOFLOXACIN
     Indication: PSORIASIS

REACTIONS (11)
  - Stevens-Johnson syndrome [Recovered/Resolved]
  - Cerebral haemorrhage [Recovered/Resolved]
  - Renal failure chronic [Recovering/Resolving]
  - Subarachnoid haemorrhage [Recovered/Resolved]
  - Paralysis [Unknown]
  - Toxic epidermal necrolysis [Unknown]
  - Anaemia [Unknown]
  - Cardiac failure congestive [Unknown]
  - Cardiac valve disease [Unknown]
  - Hemiplegia [Not Recovered/Not Resolved]
  - Cerebrovascular accident [Unknown]

NARRATIVE: CASE EVENT DATE: 200903
